FAERS Safety Report 5597528-8 (Version None)
Quarter: 2008Q1

REPORT INFORMATION
  Report Type: 
  Country: None (occurrence: None)
  Receive Date: 20080116
  Receipt Date: 20080108
  Transmission Date: 20080703
  Serious: Yes (Hospitalization, Other)
  Sender: FDA-Public Use
  Company Number: 2007SP023880

PATIENT
  Age: 51 Year
  Sex: Female
  Weight: 68.0396 kg

DRUGS (5)
  1. INTRON A [Suspect]
     Indication: HEPATITIS C
     Dosage: ; TIW;
     Dates: start: 20010101, end: 20020101
  2. PEG-INTRON [Suspect]
     Indication: HEPATITIS C
     Dosage: ; QW;
     Dates: start: 20010101, end: 20020101
  3. PEG-INTRON [Suspect]
     Indication: HEPATITIS C
     Dosage: ; QW;
     Dates: start: 20071126
  4. RIBAVIRIN [Suspect]
     Indication: HEPATITIS C
     Dosage: ; PO, ; PO
     Route: 048
     Dates: start: 20010101, end: 20020101
  5. RIBAVIRIN [Suspect]
     Indication: HEPATITIS C
     Dosage: ; PO, ; PO
     Route: 048
     Dates: start: 20071126

REACTIONS (16)
  - CATARACT [None]
  - CHOLECYSTECTOMY [None]
  - COMPLEX REGIONAL PAIN SYNDROME [None]
  - DEHYDRATION [None]
  - DEPENDENCE [None]
  - DEPRESSION [None]
  - DIABETES MELLITUS [None]
  - DRUG DEPENDENCE [None]
  - GASTRIC POLYPS [None]
  - HYSTERECTOMY [None]
  - INFLUENZA LIKE ILLNESS [None]
  - NO THERAPEUTIC RESPONSE [None]
  - PNEUMONIA [None]
  - UPPER GASTROINTESTINAL HAEMORRHAGE [None]
  - VAGINAL HAEMORRHAGE [None]
  - WEIGHT DECREASED [None]
